FAERS Safety Report 12678575 (Version 1)
Quarter: 2016Q3

REPORT INFORMATION
  Report Type: Spontaneous
  Country: GB (occurrence: GB)
  Receive Date: 20160823
  Receipt Date: 20160823
  Transmission Date: 20161109
  Serious: Yes (Other)
  Sender: FDA-Public Use
  Company Number: GB-BAUSCH-BL-2016-019626

PATIENT
  Age: 67 Year
  Sex: Female
  Weight: 59.87 kg

DRUGS (1)
  1. PILOCARPINE. [Suspect]
     Active Substance: PILOCARPINE
     Indication: PROPHYLAXIS
     Route: 047
     Dates: start: 20160726

REACTIONS (2)
  - Nausea [Recovered/Resolved]
  - Headache [Recovered/Resolved]

NARRATIVE: CASE EVENT DATE: 20160726
